FAERS Safety Report 7513360-X (Version None)
Quarter: 2011Q2

REPORT INFORMATION
  Report Type: 
  Country: None (occurrence: None)
  Receive Date: 20110525
  Receipt Date: 20110525
  Transmission Date: 20111010
  Serious: Yes (Life-Threatening, Other)
  Sender: FDA-Public Use
  Company Number: None

PATIENT
  Age: 77 Year
  Sex: Female
  Weight: 77.1115 kg

DRUGS (3)
  1. PRADAXA [Suspect]
     Indication: THERAPEUTIC PROCEDURE
     Dosage: 150 MG A DAY 1 A DAY
     Dates: start: 20110416
  2. PRADAXA [Suspect]
     Indication: THERAPEUTIC PROCEDURE
     Dosage: 150 MG A DAY 1 A DAY
     Dates: start: 20110415
  3. PRADAXA [Suspect]
     Indication: THERAPEUTIC PROCEDURE
     Dosage: 150 MG A DAY 1 A DAY
     Dates: start: 20110417

REACTIONS (6)
  - VISION BLURRED [None]
  - DIZZINESS [None]
  - HEADACHE [None]
  - NAUSEA [None]
  - NIGHTMARE [None]
  - BALANCE DISORDER [None]
